FAERS Safety Report 12630300 (Version 1)
Quarter: 2016Q3

REPORT INFORMATION
  Report Type: Spontaneous
  Country: US (occurrence: US)
  Receive Date: 20160808
  Receipt Date: 20160808
  Transmission Date: 20161109
  Serious: No
  Sender: FDA-Public Use
  Company Number: US-ACTAVIS-2016-01301

PATIENT
  Age: 29 Year
  Sex: Female
  Weight: 79.5 kg

DRUGS (1)
  1. FIORICET [Suspect]
     Active Substance: ACETAMINOPHEN\BUTALBITAL\CAFFEINE
     Indication: HEADACHE
     Dosage: 1 DF, TID
     Route: 048

REACTIONS (4)
  - Pruritus [Recovered/Resolved]
  - Feeling abnormal [Recovered/Resolved]
  - Urticaria [Not Recovered/Not Resolved]
  - Erythema [Recovered/Resolved]

NARRATIVE: CASE EVENT DATE: 20160113
